FAERS Safety Report 16514146 (Version 1)
Quarter: 2019Q3

REPORT INFORMATION
  Report Type: Spontaneous
  Country: GB (occurrence: GB)
  Receive Date: 20190702
  Receipt Date: 20190702
  Transmission Date: 20191004
  Serious: Yes (Life-Threatening, Hospitalization, Other)
  Sender: FDA-Public Use
  Company Number: GB-PFIZER INC-2019279265

PATIENT
  Age: 36 Year
  Sex: Male
  Weight: 90.71 kg

DRUGS (1)
  1. PREGABALIN. [Suspect]
     Active Substance: PREGABALIN
     Indication: NERVE INJURY
     Dosage: 600 MG, UNK
     Route: 048
     Dates: start: 20090911, end: 20190521

REACTIONS (14)
  - Disturbance in attention [Unknown]
  - Dry mouth [Unknown]
  - Keratitis [Not Recovered/Not Resolved]
  - Dependence [Unknown]
  - Anxiety [Unknown]
  - Abnormal behaviour [Not Recovered/Not Resolved]
  - Influenza like illness [Not Recovered/Not Resolved]
  - Tinnitus [Not Recovered/Not Resolved]
  - Headache [Unknown]
  - Amnesia [Not Recovered/Not Resolved]
  - Suicidal ideation [Unknown]
  - Insomnia [Not Recovered/Not Resolved]
  - Tremor [Not Recovered/Not Resolved]
  - Erectile dysfunction [Not Recovered/Not Resolved]

NARRATIVE: CASE EVENT DATE: 20181109
